FAERS Safety Report 4906275-4 (Version None)
Quarter: 2006Q1

REPORT INFORMATION
  Report Type: 
  Country: None (occurrence: None)
  Receive Date: 20060209
  Receipt Date: 20060131
  Transmission Date: 20060701
  Serious: Yes (Other)
  Sender: FDA-Public Use
  Company Number: TR-AVENTIS-200610635EU

PATIENT
  Age: 43 Year
  Sex: Male

DRUGS (2)
  1. NITROGLYCERIN [Suspect]
     Indication: BLOOD PRESSURE INCREASED
     Route: 042
  2. NIFEDIPINE [Concomitant]
     Indication: HYPERTENSION
     Dosage: DOSE: UNKNOWN DOSE

REACTIONS (1)
  - HYPOXIA [None]
